FAERS Safety Report 25806613 (Version 1)
Quarter: 2025Q3

REPORT INFORMATION
  Report Type: Spontaneous
  Country: US (occurrence: US)
  Receive Date: 20250916
  Receipt Date: 20250916
  Transmission Date: 20251021
  Serious: Yes (Other)
  Sender: MYLAN
  Company Number: US-MYLANLABS-2025M1077498

PATIENT
  Age: 39 Year
  Sex: Female

DRUGS (28)
  1. METHADONE [Suspect]
     Active Substance: METHADONE HYDROCHLORIDE
     Indication: Drug use disorder
     Dosage: 75 MILLIGRAM, BID
  2. METHADONE [Suspect]
     Active Substance: METHADONE HYDROCHLORIDE
     Dosage: 75 MILLIGRAM, BID
     Route: 065
  3. METHADONE [Suspect]
     Active Substance: METHADONE HYDROCHLORIDE
     Dosage: 75 MILLIGRAM, BID
     Route: 065
  4. METHADONE [Suspect]
     Active Substance: METHADONE HYDROCHLORIDE
     Dosage: 75 MILLIGRAM, BID
  5. FENTANYL [Suspect]
     Active Substance: FENTANYL
     Indication: Product used for unknown indication
  6. FENTANYL [Suspect]
     Active Substance: FENTANYL
     Route: 042
  7. FENTANYL [Suspect]
     Active Substance: FENTANYL
     Route: 042
  8. FENTANYL [Suspect]
     Active Substance: FENTANYL
  9. FENTANYL [Suspect]
     Active Substance: FENTANYL
     Indication: Spinal anaesthesia
  10. FENTANYL [Suspect]
     Active Substance: FENTANYL
     Route: 065
  11. FENTANYL [Suspect]
     Active Substance: FENTANYL
     Route: 065
  12. FENTANYL [Suspect]
     Active Substance: FENTANYL
  13. CLONIDINE [Suspect]
     Active Substance: CLONIDINE
     Indication: Pain
  14. CLONIDINE [Suspect]
     Active Substance: CLONIDINE
     Indication: Drug use disorder
     Route: 037
  15. CLONIDINE [Suspect]
     Active Substance: CLONIDINE
     Route: 037
  16. CLONIDINE [Suspect]
     Active Substance: CLONIDINE
  17. METHAMPHETAMINE [Suspect]
     Active Substance: METHAMPHETAMINE
     Indication: Product used for unknown indication
  18. METHAMPHETAMINE [Suspect]
     Active Substance: METHAMPHETAMINE
     Route: 065
  19. METHAMPHETAMINE [Suspect]
     Active Substance: METHAMPHETAMINE
     Route: 065
  20. METHAMPHETAMINE [Suspect]
     Active Substance: METHAMPHETAMINE
  21. BUPIVACAINE [Suspect]
     Active Substance: BUPIVACAINE
     Indication: Spinal anaesthesia
  22. BUPIVACAINE [Suspect]
     Active Substance: BUPIVACAINE
     Route: 065
  23. BUPIVACAINE [Suspect]
     Active Substance: BUPIVACAINE
     Route: 065
  24. BUPIVACAINE [Suspect]
     Active Substance: BUPIVACAINE
  25. MORPHINE [Suspect]
     Active Substance: MORPHINE
     Indication: Spinal anaesthesia
  26. MORPHINE [Suspect]
     Active Substance: MORPHINE
     Route: 065
  27. MORPHINE [Suspect]
     Active Substance: MORPHINE
     Route: 065
  28. MORPHINE [Suspect]
     Active Substance: MORPHINE

REACTIONS (4)
  - Drug abuse [Unknown]
  - Maternal exposure during delivery [Recovered/Resolved]
  - Maternal exposure during pregnancy [Recovered/Resolved]
  - Off label use [Unknown]
